FAERS Safety Report 11330015 (Version 2)
Quarter: 2015Q3

REPORT INFORMATION
  Report Type: Spontaneous
  Country: CN (occurrence: CN)
  Receive Date: 20150803
  Receipt Date: 20150805
  Transmission Date: 20151125
  Serious: No
  Sender: FDA-Public Use
  Company Number: CN-JNJFOC-20150703199

PATIENT
  Age: 25 Year
  Sex: Female

DRUGS (4)
  1. SPORANOX [Suspect]
     Active Substance: ITRACONAZOLE\SODIUM CHLORIDE
     Indication: VAGINAL INFECTION
     Route: 048
     Dates: start: 20150613
  2. NAPHTHALENE [Concomitant]
     Active Substance: NAPHTHALENE
     Route: 065
  3. ERYTHROMYCIN. [Suspect]
     Active Substance: ERYTHROMYCIN
     Indication: PRODUCT USED FOR UNKNOWN INDICATION
     Route: 065
  4. HYDROCHLORIC ACID [Concomitant]
     Active Substance: HYDROCHLORIC ACID
     Route: 065

REACTIONS (1)
  - Exposure during pregnancy [Recovered/Resolved]
